FAERS Safety Report 15151178 (Version 2)
Quarter: 2018Q3

REPORT INFORMATION
  Report Type: Spontaneous
  Country: US (occurrence: US)
  Receive Date: 20180716
  Receipt Date: 20180921
  Transmission Date: 20181010
  Serious: Yes (Other)
  Sender: FDA-Public Use
  Company Number: US-SA-2018SA189198

PATIENT
  Age: 57 Year
  Sex: Female
  Weight: 70 kg

DRUGS (6)
  1. AUBAGIO [Suspect]
     Active Substance: TERIFLUNOMIDE
     Indication: MULTIPLE SCLEROSIS
     Dosage: 14 MG, QD
     Route: 048
     Dates: start: 201705, end: 20171223
  2. LISINOPRIL HCT [HYDROCHLOROTHIAZIDE;LISINOPRIL] [Concomitant]
     Dosage: 1 DF, QD
     Route: 048
  3. TECFIDERA [Concomitant]
     Active Substance: DIMETHYL FUMARATE
     Dosage: 1 DF, BID
     Route: 048
  4. FLUOXETINE HCL [Concomitant]
     Active Substance: FLUOXETINE HYDROCHLORIDE
     Dosage: 1 DF, QD
     Route: 048
  5. TYSABRI [Concomitant]
     Active Substance: NATALIZUMAB
     Dosage: UNK
     Dates: start: 2018
  6. NORTRIPTYLINE HCL [Concomitant]
     Active Substance: NORTRIPTYLINE HYDROCHLORIDE
     Dosage: 1 DF, QD
     Route: 048

REACTIONS (10)
  - Hepatic function abnormal [Recovering/Resolving]
  - Hyperhidrosis [Unknown]
  - Headache [Unknown]
  - Paraesthesia [Unknown]
  - Liver function test increased [Recovering/Resolving]
  - Insomnia [Unknown]
  - Pain [Unknown]
  - Diarrhoea [Unknown]
  - Alopecia [Unknown]
  - Fatigue [Unknown]

NARRATIVE: CASE EVENT DATE: 2017
